FAERS Safety Report 23182811 (Version 1)
Quarter: 2023Q4

REPORT INFORMATION
  Report Type: Spontaneous
  Country: US (occurrence: US)
  Receive Date: 20231114
  Receipt Date: 20231114
  Transmission Date: 20240109
  Serious: No
  Sender: FDA-Public Use
  Company Number: US-BRISTOL-MYERS SQUIBB COMPANY-2023-162914

PATIENT

DRUGS (2)
  1. ORENCIA [Suspect]
     Active Substance: ABATACEPT
     Indication: Psoriatic arthropathy
     Dosage: DRY SUBSTANCE 250MG WITH SYRINGE VIAL?AMOUNT: 2
     Route: 058
     Dates: start: 20230726
  2. ORENCIA [Suspect]
     Active Substance: ABATACEPT
     Dosage: DRY SUBSTANCE 250MG WITH SYRINGE VIAL?AMOUNT: 2
     Route: 058
     Dates: start: 20230822

REACTIONS (1)
  - Off label use [Unknown]
